FAERS Safety Report 17857600 (Version 4)
Quarter: 2021Q2

REPORT INFORMATION
  Report Type: Other
  Country: US (occurrence: US)
  Receive Date: 20200604
  Receipt Date: 20210430
  Transmission Date: 20210717
  Serious: Yes (Hospitalization)
  Sender: FDA-Public Use
  Company Number: US-ROCHE-2610632

PATIENT
  Sex: Female

DRUGS (1)
  1. COTELLIC [Suspect]
     Active Substance: COBIMETINIB
     Indication: HISTIOCYTOSIS
     Dosage: TAKE 2 TABLET(S) BY MOUTH DAILY FOR 21 DAYS OF 28
     Route: 048

REACTIONS (3)
  - Off label use [Unknown]
  - Kidney infection [Unknown]
  - Product use in unapproved indication [Unknown]
